FAERS Safety Report 4457565-3 (Version None)
Quarter: 2004Q3

REPORT INFORMATION
  Report Type: 
  Country: None (occurrence: None)
  Receive Date: 20040922
  Receipt Date: 20040913
  Transmission Date: 20050211
  Serious: No
  Sender: FDA-Public Use
  Company Number: 2004UW18646

PATIENT
  Age: 70 Year
  Sex: Female
  Weight: 53.978 kg

DRUGS (4)
  1. IRESSA [Suspect]
     Indication: NON-SMALL CELL LUNG CANCER
     Dosage: 500 MG DAILY PO
     Route: 048
     Dates: start: 20010215
  2. PRILOSEC [Concomitant]
  3. PLAVIX [Concomitant]
  4. LIPITOR [Concomitant]

REACTIONS (5)
  - BRAIN NEOPLASM [None]
  - GASTROOESOPHAGEAL REFLUX DISEASE [None]
  - HAEMOPTYSIS [None]
  - HEPATIC NEOPLASM [None]
  - LUNG NEOPLASM [None]
